FAERS Safety Report 13966740 (Version 2)
Quarter: 2017Q3

REPORT INFORMATION
  Report Type: Spontaneous
  Country: US (occurrence: US)
  Receive Date: 20170914
  Receipt Date: 20170925
  Transmission Date: 20171128
  Serious: Yes (Hospitalization)
  Sender: FDA-Public Use
  Company Number: US-ALVOGEN-2017-ALVOGEN-093455

PATIENT
  Age: 71 Year
  Sex: Female
  Weight: 91.17 kg

DRUGS (12)
  1. LISINOPRIL. [Suspect]
     Active Substance: LISINOPRIL
     Indication: CARDIAC FAILURE CONGESTIVE
     Route: 048
     Dates: start: 2011
  2. PANTOPRAZOLE [Concomitant]
     Active Substance: PANTOPRAZOLE
     Indication: ULCER HAEMORRHAGE
     Route: 048
     Dates: start: 2011
  3. METFORMIN [Concomitant]
     Active Substance: METFORMIN HYDROCHLORIDE
     Indication: TYPE 2 DIABETES MELLITUS
     Route: 048
     Dates: start: 2010, end: 2017
  4. PREDNISONE. [Concomitant]
     Active Substance: PREDNISONE
     Indication: CHRONIC OBSTRUCTIVE PULMONARY DISEASE
     Dosage: EVERY OTHER DAY
     Route: 048
  5. CARVEDILOL. [Concomitant]
     Active Substance: CARVEDILOL
     Indication: CARDIAC FAILURE CONGESTIVE
     Route: 048
     Dates: start: 2010
  6. GLIMEPIRIDE. [Concomitant]
     Active Substance: GLIMEPIRIDE
     Indication: TYPE 2 DIABETES MELLITUS
     Route: 048
     Dates: start: 2015
  7. LISINOPRIL. [Suspect]
     Active Substance: LISINOPRIL
     Indication: CARDIAC FAILURE CONGESTIVE
     Route: 048
     Dates: start: 2011
  8. LISINOPRIL. [Suspect]
     Active Substance: LISINOPRIL
     Indication: CARDIAC FAILURE CONGESTIVE
     Route: 048
     Dates: start: 2011
  9. BYDUREON [Suspect]
     Active Substance: EXENATIDE
     Indication: BLOOD GLUCOSE INCREASED
     Route: 058
     Dates: start: 20170724
  10. PREDNISONE. [Concomitant]
     Active Substance: PREDNISONE
     Indication: CHRONIC OBSTRUCTIVE PULMONARY DISEASE
     Route: 048
  11. DIGOXIN. [Concomitant]
     Active Substance: DIGOXIN
     Indication: CARDIAC FAILURE CONGESTIVE
     Route: 048
     Dates: start: 2010
  12. JANUVIA [Concomitant]
     Active Substance: SITAGLIPTIN PHOSPHATE
     Indication: TYPE 2 DIABETES MELLITUS
     Route: 048
     Dates: start: 201701

REACTIONS (3)
  - Renal failure [Unknown]
  - Blood glucose increased [Unknown]
  - Injection site mass [Unknown]

NARRATIVE: CASE EVENT DATE: 20170724
